FAERS Safety Report 13969847 (Version 1)
Quarter: 2017Q3

REPORT INFORMATION
  Report Type: Spontaneous
  Country: FR (occurrence: FR)
  Receive Date: 20170914
  Receipt Date: 20170914
  Transmission Date: 20171128
  Serious: Yes (Death, Other)
  Sender: FDA-Public Use
  Company Number: FR-009507513-1709FRA004528

PATIENT
  Age: 50 Year
  Sex: Male

DRUGS (1)
  1. ZERBAXA [Suspect]
     Active Substance: CEFTOLOZANE SULFATE\TAZOBACTAM SODIUM
     Indication: LUNG INFECTION PSEUDOMONAL
     Dosage: UNK, 500/250 MG CEFTOLOZANE/ TAZOBACTUM FOLLOWED 8 HOURS LATER BY A MAINTENANCE DOSE OF 100/50MG Q8H
     Dates: start: 20170721, end: 20170728

REACTIONS (3)
  - Pathogen resistance [Unknown]
  - Off label use [Unknown]
  - Death [Fatal]

NARRATIVE: CASE EVENT DATE: 201707
